FAERS Safety Report 7881654-4 (Version None)
Quarter: 2011Q4

REPORT INFORMATION
  Report Type: 
  Country: None (occurrence: None)
  Receive Date: 20111101
  Receipt Date: 20110524
  Transmission Date: 20120403
  Serious: No
  Sender: FDA-Public Use
  Company Number: US-AMGEN-USASP2011026932

PATIENT
  Sex: Male

DRUGS (1)
  1. ENBREL [Suspect]
     Indication: ANKYLOSING SPONDYLITIS
     Dosage: UNK
     Dates: start: 20050601

REACTIONS (6)
  - ARTHRALGIA [None]
  - SKIN BURNING SENSATION [None]
  - MALAISE [None]
  - INJECTION SITE SWELLING [None]
  - BACK PAIN [None]
  - INJECTION SITE REACTION [None]
